FAERS Safety Report 20845259 (Version 3)
Quarter: 2023Q2

REPORT INFORMATION
  Report Type: Report from Study
  Country: CH (occurrence: CH)
  Receive Date: 20220518
  Receipt Date: 20230406
  Transmission Date: 20230722
  Serious: Yes (Death, Other)
  Sender: FDA-Public Use
  Company Number: CH-AMGEN-CHENI2022082518

PATIENT
  Age: 77 Year
  Sex: Male
  Weight: 59.6 kg

DRUGS (18)
  1. BLINATUMOMAB [Suspect]
     Active Substance: BLINATUMOMAB
     Indication: Acute lymphocytic leukaemia
     Dosage: 28 MICROGRAM, QD
     Route: 042
     Dates: start: 20210210
  2. AMLODIPINE [Concomitant]
     Active Substance: AMLODIPINE BESYLATE
     Dosage: 10 MILLIGRAM
     Dates: start: 20200701, end: 20211129
  3. VALTREX [Concomitant]
     Active Substance: VALACYCLOVIR HYDROCHLORIDE
     Dosage: 500 MILLIGRAM
     Dates: start: 20210216, end: 20211116
  4. MOVICOL [Concomitant]
     Active Substance: POLYETHYLENE GLYCOL 3350\POTASSIUM CHLORIDE\SODIUM BICARBONATE\SODIUM CHLORIDE
     Dosage: 1 UNK
     Dates: start: 20210216, end: 20211124
  5. METOCLOPRAMIDE [Concomitant]
     Active Substance: METOCLOPRAMIDE
     Dosage: 10 MILLIGRAM
     Dates: start: 20210215, end: 20211201
  6. PERINDOPRIL ERBUMINE [Concomitant]
     Active Substance: PERINDOPRIL ERBUMINE
     Dosage: 4 MILLIGRAM
     Dates: start: 202012, end: 20211129
  7. CARVEDILOL [Concomitant]
     Active Substance: CARVEDILOL
     Dosage: 12.5 MILLIGRAM
     Dates: start: 20200701, end: 20211117
  8. TORSEMIDE [Concomitant]
     Active Substance: TORSEMIDE
     Dosage: 2.5 MILLIGRAM
     Dates: start: 202012, end: 20211118
  9. LEVOTHYROXINE [Concomitant]
     Active Substance: LEVOTHYROXINE
     Dosage: 0.05 MILLIGRAM
     Dates: start: 20100108, end: 20211129
  10. ACETAMINOPHEN [Concomitant]
     Active Substance: ACETAMINOPHEN
     Dosage: 500 MILLIGRAM
     Dates: start: 20200819, end: 20211202
  11. ESOMEPRAZOLE [Concomitant]
     Active Substance: ESOMEPRAZOLE
     Dosage: 20 MILLIGRAM
     Dates: start: 20200819, end: 20211117
  12. Temesta [Concomitant]
     Dosage: 0.5 UNK
     Dates: start: 202012, end: 20211118
  13. DEXAMETHASONE [Concomitant]
     Active Substance: DEXAMETHASONE
     Dosage: 26 MILLIGRAM
     Dates: start: 20210827, end: 20210828
  14. TAMSULOSIN HYDROCHLORIDE [Concomitant]
     Active Substance: TAMSULOSIN HYDROCHLORIDE
     Dosage: 0.4 MILLIGRAM
     Dates: start: 20210323, end: 20211127
  15. ICLUSIG [Concomitant]
     Active Substance: PONATINIB
     Dosage: 30 -45 MILLIGRAM
     Dates: start: 20210210, end: 20210915
  16. KIOVIG [Concomitant]
     Active Substance: HUMAN IMMUNOGLOBULIN G
     Dosage: 20 GRAM
     Dates: start: 20210826, end: 20210826
  17. CLEMASTINE [Concomitant]
     Active Substance: CLEMASTINE
     Dosage: 2 MILLIGRAM
     Dates: start: 20210826, end: 20210826
  18. ASCIMINIB [Concomitant]
     Active Substance: ASCIMINIB
     Dosage: 80-120 MILLIGRAM
     Dates: start: 20210916, end: 20211006

REACTIONS (2)
  - Acute kidney injury [Fatal]
  - Muscle spasms [Recovered/Resolved]

NARRATIVE: CASE EVENT DATE: 20210907
